FAERS Safety Report 12419928 (Version 1)
Quarter: 2016Q2

REPORT INFORMATION
  Report Type: Spontaneous
  Country: TW (occurrence: TW)
  Receive Date: 20160531
  Receipt Date: 20160531
  Transmission Date: 20160815
  Serious: Yes (Hospitalization)
  Sender: FDA-Public Use
  Company Number: TW-KERYX BIOPHARMACEUTICALS, INC.-2016TW002044

PATIENT
  Sex: Female

DRUGS (2)
  1. NEPHOXIL [Suspect]
     Active Substance: FERRIC CITRATE ANHYDROUS
     Indication: HYPERPHOSPHATAEMIA
     Dosage: 3,000 MG PER DAY (6X500MG)
     Route: 048
     Dates: start: 201602, end: 201604
  2. NEPHOXIL [Suspect]
     Active Substance: FERRIC CITRATE ANHYDROUS
     Dosage: 4,000 MG PER DAY (8X500 MG)
     Route: 048
     Dates: start: 201604, end: 20160427

REACTIONS (3)
  - Back pain [Unknown]
  - Dizziness [Unknown]
  - Gastric haemorrhage [Unknown]

NARRATIVE: CASE EVENT DATE: 20160426
